FAERS Safety Report 7386404-6 (Version None)
Quarter: 2011Q1

REPORT INFORMATION
  Report Type: 
  Country: None (occurrence: None)
  Receive Date: 20110331
  Receipt Date: 20110318
  Transmission Date: 20110831
  Serious: Yes (Other)
  Sender: FDA-Public Use
  Company Number: PHHY2011UY22682

PATIENT

DRUGS (1)
  1. LEPONEX [Suspect]

REACTIONS (1)
  - LEUKAEMIA [None]
